FAERS Safety Report 4996669-3 (Version None)
Quarter: 2006Q2

REPORT INFORMATION
  Report Type: 
  Country: None (occurrence: None)
  Receive Date: 20060509
  Receipt Date: 20050823
  Transmission Date: 20061013
  Serious: Yes (Other)
  Sender: FDA-Public Use
  Company Number: US-MERCK-0508USA03947

PATIENT
  Age: 70 Year
  Sex: Female
  Weight: 80 kg

DRUGS (1)
  1. VIOXX [Suspect]
     Indication: ARTHRALGIA
     Route: 048
     Dates: start: 20010316, end: 20040930

REACTIONS (3)
  - CHEST PAIN [None]
  - MYOCARDIAL INFARCTION [None]
  - PULMONARY FIBROSIS [None]
